FAERS Safety Report 10227000 (Version 1)
Quarter: 2014Q2

REPORT INFORMATION
  Report Type: Spontaneous
  Country: US (occurrence: None)
  Receive Date: 20140528
  Receipt Date: 20140528
  Transmission Date: 20141212
  Serious: Yes (Other)
  Sender: FDA-Public Use
  Company Number: QR80516-01

PATIENT
  Sex: Male

DRUGS (1)
  1. GAMMAPLEX [Suspect]

REACTIONS (1)
  - Thrombosis [None]
